FAERS Safety Report 17039427 (Version 1)
Quarter: 2019Q4

REPORT INFORMATION
  Report Type: Spontaneous
  Country: US (occurrence: US)
  Receive Date: 20191115
  Receipt Date: 20191115
  Transmission Date: 20200122
  Serious: No
  Sender: FDA-Public Use
  Company Number: US-SIGMAPHARM LABORATORIES, LLC-2019SIG00128

PATIENT
  Sex: Male

DRUGS (2)
  1. GRISEOFULVIN (MICROSIZE) [Suspect]
     Active Substance: GRISEOFULVIN, MICROSIZE
     Dosage: 500 MG, 2X/DAY
     Dates: start: 2016, end: 2019
  2. AMLODIPINE [Suspect]
     Active Substance: AMLODIPINE BESYLATE
     Dosage: 30 MG, 1X/DAY

REACTIONS (4)
  - Weight increased [Not Recovered/Not Resolved]
  - Metabolic disorder [Not Recovered/Not Resolved]
  - Ageusia [Not Recovered/Not Resolved]
  - Decreased appetite [Not Recovered/Not Resolved]
